FAERS Safety Report 6038218-7 (Version None)
Quarter: 2009Q1

REPORT INFORMATION
  Report Type: 
  Country: None (occurrence: None)
  Receive Date: 20090115
  Receipt Date: 20090105
  Transmission Date: 20090719
  Serious: Yes (Other)
  Sender: FDA-Public Use
  Company Number: CA-WYE-H07025208

PATIENT
  Sex: Female
  Weight: 58.2 kg

DRUGS (11)
  1. DESVENLAFAXINE SUCCINATE MONOHYDRATE [Suspect]
     Indication: MENOPAUSAL SYMPTOMS
     Route: 048
     Dates: start: 20080916, end: 20080922
  2. DESVENLAFAXINE SUCCINATE MONOHYDRATE [Suspect]
     Route: 048
     Dates: start: 20080923, end: 20081027
  3. DESVENLAFAXINE SUCCINATE MONOHYDRATE [Suspect]
     Route: 048
     Dates: start: 20081030, end: 20081211
  4. ACETYLSALICYLIC ACID SRT [Concomitant]
     Indication: CARDIOVASCULAR EVENT PROPHYLAXIS
     Dosage: UNKNOWN
     Dates: start: 20050101
  5. NEXIUM [Concomitant]
     Indication: GASTROOESOPHAGEAL REFLUX DISEASE
     Dosage: UNKNOWN
     Dates: start: 20041129
  6. LIPITOR [Concomitant]
     Indication: DYSLIPIDAEMIA
     Dosage: UNKNOWN
     Dates: start: 20061108
  7. SENNA [Concomitant]
     Indication: CONSTIPATION
     Dosage: UNKNOWN
     Dates: start: 19700101
  8. REACTINE [Concomitant]
     Indication: PRURITUS
     Dosage: UNKNOWN
     Dates: start: 20080915
  9. CHAMPIX [Suspect]
     Indication: SMOKING CESSATION THERAPY
     Dosage: UNKNOWN
     Dates: start: 20080916, end: 20081027
  10. ALTACE [Concomitant]
     Indication: HYPERTENSION
     Dosage: UNKNOWN
     Dates: start: 20080107
  11. SYNTHROID [Concomitant]
     Indication: HYPOTHYROIDISM
     Dosage: UNKNOWN
     Dates: start: 20070218

REACTIONS (1)
  - ANTERIOR CHAMBER DISORDER [None]
